FAERS Safety Report 9398285 (Version 1)
Quarter: 2013Q3

REPORT INFORMATION
  Report Type: Spontaneous
  Country: US (occurrence: US)
  Receive Date: 20130712
  Receipt Date: 20130712
  Transmission Date: 20140515
  Serious: No
  Sender: FDA-Public Use
  Company Number: US-GLAXOSMITHKLINE-A1000752A

PATIENT
  Age: 53 Year
  Sex: Female

DRUGS (6)
  1. FLOVENT [Suspect]
     Indication: CHRONIC OBSTRUCTIVE PULMONARY DISEASE
     Dosage: 1PUFF TWICE PER DAY
     Route: 055
     Dates: start: 2011
  2. VENTOLIN [Suspect]
     Indication: CHRONIC OBSTRUCTIVE PULMONARY DISEASE
     Dosage: 1PUFF TWICE PER DAY
     Route: 055
     Dates: start: 2009
  3. MUCINEX [Concomitant]
  4. STEROIDS [Concomitant]
  5. ANTIBIOTICS [Concomitant]
  6. PHENOBARBITAL [Concomitant]

REACTIONS (2)
  - Bronchitis [Recovering/Resolving]
  - Product quality issue [Unknown]
